FAERS Safety Report 7766802-9 (Version None)
Quarter: 2011Q3

REPORT INFORMATION
  Report Type: 
  Country: None (occurrence: None)
  Receive Date: 20110922
  Receipt Date: 20110112
  Transmission Date: 20111222
  Serious: No
  Sender: FDA-Public Use
  Company Number: US-ASTRAZENECA-2010SE14823

PATIENT
  Age: 40 Year
  Sex: Female
  Weight: 65.8 kg

DRUGS (12)
  1. SEROQUEL XR [Suspect]
     Indication: PANIC ATTACK
     Route: 048
     Dates: start: 20100101
  2. SEROQUEL XR [Suspect]
     Route: 048
  3. SEROQUEL XR [Suspect]
     Indication: BIPOLAR I DISORDER
     Route: 048
     Dates: start: 20100101
  4. SEROQUEL XR [Suspect]
     Indication: ANXIETY
     Route: 048
     Dates: start: 20100101
  5. TRAMADOL HCL [Concomitant]
     Indication: FIBROMYALGIA
  6. SEROQUEL XR [Suspect]
     Route: 048
  7. SEROQUEL XR [Suspect]
     Route: 048
     Dates: start: 20100402
  8. SEROQUEL XR [Suspect]
     Route: 048
     Dates: start: 20100402
  9. PRISTIQ [Concomitant]
  10. XANAX [Concomitant]
  11. SEROQUEL XR [Suspect]
     Route: 048
  12. SEROQUEL XR [Suspect]
     Route: 048
     Dates: start: 20100402

REACTIONS (7)
  - SEDATION [None]
  - HEADACHE [None]
  - DRUG EFFECT DECREASED [None]
  - HYPERSOMNIA [None]
  - DRUG EFFECT INCREASED [None]
  - MALAISE [None]
  - SOMNOLENCE [None]
